FAERS Safety Report 10915875 (Version 1)
Quarter: 2015Q1

REPORT INFORMATION
  Report Type: Spontaneous
  Country: US (occurrence: None)
  Receive Date: 20150311
  Receipt Date: 20150311
  Transmission Date: 20150721
  Serious: Yes (Disabling, Other)
  Sender: FDA-Public Use
  Company Number: None

PATIENT
  Age: 76 Year
  Sex: Female
  Weight: 74.84 kg

DRUGS (15)
  1. ALBUTEROL ?? [Concomitant]
  2. VALSARTAN. [Concomitant]
     Active Substance: VALSARTAN
  3. PRILOSEC [Concomitant]
     Active Substance: OMEPRAZOLE MAGNESIUM
  4. AVAPRO [Concomitant]
     Active Substance: IRBESARTAN
  5. TENORMIN [Concomitant]
     Active Substance: ATENOLOL
  6. MAXZIDE [Concomitant]
     Active Substance: HYDROCHLOROTHIAZIDE\TRIAMTERENE
  7. VITAMIN B12 [Concomitant]
     Active Substance: CYANOCOBALAMIN
  8. ADVAIR DISKUS [Suspect]
     Active Substance: FLUTICASONE PROPIONATE\SALMETEROL XINAFOATE
     Indication: TOTAL LUNG CAPACITY ABNORMAL
     Dosage: 250MCG/50MCG, 1-2 PUFFS 2 TIMES DAY, TWICE DAILY, BY MOUTH
     Route: 048
     Dates: start: 20141020, end: 20150205
  9. ASA [Concomitant]
     Active Substance: ASPIRIN
  10. ASTELIN [Concomitant]
     Active Substance: AZELASTINE HYDROCHLORIDE
  11. FLONASE [Concomitant]
     Active Substance: FLUTICASONE PROPIONATE
  12. DILTIAZEM CD? [Concomitant]
  13. PROMARIN CR [Concomitant]
  14. WARFARIN ??? [Concomitant]
  15. B-100 - PROBIOTIC [Concomitant]

REACTIONS (10)
  - Conjunctivitis [None]
  - Dysphonia [None]
  - Muscle spasms [None]
  - Vision blurred [None]
  - Dental discomfort [None]
  - Glaucoma [None]
  - Throat irritation [None]
  - Atrial fibrillation [None]
  - Heart rate irregular [None]
  - Tachycardia [None]

NARRATIVE: CASE EVENT DATE: 20141020
